FAERS Safety Report 25572675 (Version 4)
Quarter: 2025Q3

REPORT INFORMATION
  Report Type: Spontaneous
  Country: US (occurrence: US)
  Receive Date: 20250717
  Receipt Date: 20250814
  Transmission Date: 20251020
  Serious: No
  Sender: SANOFI AVENTIS
  Company Number: US-SANOFI-02585075

PATIENT
  Age: 69 Year
  Sex: Female

DRUGS (1)
  1. LANTUS SOLOSTAR [Suspect]
     Active Substance: INSULIN GLARGINE
     Indication: Type 2 diabetes mellitus
     Dosage: 30 IU, QD
     Route: 058
     Dates: start: 2021

REACTIONS (7)
  - Injection site vesicles [Unknown]
  - Injection site pain [Unknown]
  - Injection site haemorrhage [Unknown]
  - Arthritis [Unknown]
  - Muscle spasms [Unknown]
  - Lack of injection site rotation [Unknown]
  - Device issue [Unknown]
